FAERS Safety Report 25591605 (Version 1)
Quarter: 2025Q3

REPORT INFORMATION
  Report Type: Spontaneous
  Country: US (occurrence: US)
  Receive Date: 20250722
  Receipt Date: 20250722
  Transmission Date: 20251021
  Serious: Yes (Death)
  Sender: KARYOPHARM THERAPEUTICS
  Company Number: US-KARYOPHARM-2025KPT100522

PATIENT

DRUGS (21)
  1. SELINEXOR [Suspect]
     Active Substance: SELINEXOR
     Indication: Plasma cell myeloma
     Route: 048
     Dates: start: 20250504, end: 2025
  2. ACYCLOVIR [Concomitant]
     Active Substance: ACYCLOVIR
  3. ATIVAN [Concomitant]
     Active Substance: LORAZEPAM
  4. ATOVAQUONE [Concomitant]
     Active Substance: ATOVAQUONE
  5. BUMEX [Concomitant]
     Active Substance: BUMETANIDE
  6. CRESTOR [Concomitant]
     Active Substance: ROSUVASTATIN CALCIUM
  7. CIPRO [Concomitant]
     Active Substance: CIPROFLOXACIN HYDROCHLORIDE
  8. DARZALEX [Concomitant]
     Active Substance: DARATUMUMAB
  9. ELIQUIS [Concomitant]
     Active Substance: APIXABAN
  10. ESOMEPRAZOLE [Concomitant]
     Active Substance: ESOMEPRAZOLE
  11. ERYTHROMYCIN [Concomitant]
     Active Substance: ERYTHROMYCIN
  12. METOPROLOL TARTRATE [Concomitant]
     Active Substance: METOPROLOL TARTRATE
  13. MORPHINE SULFATE [Concomitant]
     Active Substance: MORPHINE SULFATE
  14. NYSTATIN [Concomitant]
     Active Substance: NYSTATIN
  15. NEXIUM I.V. [Concomitant]
     Active Substance: ESOMEPRAZOLE SODIUM
  16. LIDOCAINE 5% EXTRA [Concomitant]
  17. PROCARDIA [Concomitant]
     Active Substance: NIFEDIPINE
  18. RAPAMUNE [Concomitant]
     Active Substance: SIROLIMUS
  19. TADALAFIL [Concomitant]
     Active Substance: TADALAFIL
  20. XGEVA [Concomitant]
     Active Substance: DENOSUMAB
  21. ZOFRAN [Concomitant]
     Active Substance: ONDANSETRON HYDROCHLORIDE

REACTIONS (1)
  - Death [Fatal]

NARRATIVE: CASE EVENT DATE: 20250614
